FAERS Safety Report 5669070-7 (Version None)
Quarter: 2008Q1

REPORT INFORMATION
  Report Type: 
  Country: None (occurrence: None)
  Receive Date: 20080317
  Receipt Date: 20080303
  Transmission Date: 20080703
  Serious: Yes (Other)
  Sender: FDA-Public Use
  Company Number: CA-AMGEN-KDL266652

PATIENT
  Sex: Female

DRUGS (1)
  1. ARANESP [Suspect]
     Indication: MYELODYSPLASTIC SYNDROME
     Route: 058
     Dates: start: 20080211, end: 20080211

REACTIONS (3)
  - BONE PAIN [None]
  - MUSCLE TIGHTNESS [None]
  - MUSCULOSKELETAL PAIN [None]
